FAERS Safety Report 24595324 (Version 2)
Quarter: 2024Q4

REPORT INFORMATION
  Report Type: Spontaneous
  Country: KZ (occurrence: KZ)
  Receive Date: 20241109
  Receipt Date: 20241128
  Transmission Date: 20250114
  Serious: Yes (Other)
  Sender: ROCHE
  Company Number: KZ-ROCHE-10000125082

PATIENT
  Age: 17 Year
  Sex: Male

DRUGS (10)
  1. MYCOPHENOLATE MOFETIL [Suspect]
     Active Substance: MYCOPHENOLATE MOFETIL
     Indication: Nephrotic syndrome
     Route: 065
  2. PREDNISOLONE [Suspect]
     Active Substance: PREDNISOLONE
     Indication: Nephrotic syndrome
     Dosage: EVERY OTHER DAY
     Route: 065
  3. PREDNISOLONE [Suspect]
     Active Substance: PREDNISOLONE
     Route: 065
  4. CYCLOSPORINE [Concomitant]
     Active Substance: CYCLOSPORINE
  5. CYCLOPHOSPHAMIDE [Concomitant]
     Active Substance: CYCLOPHOSPHAMIDE
  6. BASILIXIMAB [Concomitant]
     Active Substance: BASILIXIMAB
     Route: 042
  7. METHYLPREDNISOLONE [Concomitant]
     Active Substance: METHYLPREDNISOLONE
     Route: 042
  8. PROGRAF [Concomitant]
     Active Substance: TACROLIMUS
  9. MYFORTIC [Concomitant]
     Active Substance: MYCOPHENOLATE SODIUM
  10. KETOPROFEN [Concomitant]
     Active Substance: KETOPROFEN
     Route: 042

REACTIONS (1)
  - Disease progression [Unknown]
